FAERS Safety Report 4423464-6 (Version None)
Quarter: 2004Q3

REPORT INFORMATION
  Report Type: 
  Country: None (occurrence: None)
  Receive Date: 20040806
  Receipt Date: 20040729
  Transmission Date: 20050211
  Serious: Yes (Hospitalization)
  Sender: FDA-Public Use
  Company Number: 04P-229-0259738-00

PATIENT
  Age: 8 Year
  Sex: Male

DRUGS (6)
  1. VALPROATE SODIUM [Suspect]
     Indication: EPILEPSY
     Dates: start: 20010701, end: 20040329
  2. TOPIRMATE [Concomitant]
  3. MORPHINE [Concomitant]
  4. ACETAMINOPHEN [Concomitant]
  5. CIPROFLOXACIN [Concomitant]
  6. METRONIDAZOLE [Concomitant]

REACTIONS (6)
  - ABDOMINAL PAIN LOWER [None]
  - APPENDICECTOMY [None]
  - LIPASE DECREASED [None]
  - OEDEMA [None]
  - PANCREATITIS [None]
  - VOMITING [None]
